FAERS Safety Report 4483735-4 (Version None)
Quarter: 2004Q4

REPORT INFORMATION
  Report Type: 
  Country: None (occurrence: None)
  Receive Date: 20041020
  Receipt Date: 20041005
  Transmission Date: 20050328
  Serious: Yes (Hospitalization, Other)
  Sender: FDA-Public Use
  Company Number: 159479

PATIENT
  Age: 55 Year
  Sex: Female

DRUGS (2)
  1. AVONEX [Suspect]
     Indication: MULTIPLE SCLEROSIS
     Dates: start: 19980101, end: 20000101
  2. AVONEX [Suspect]
     Indication: MULTIPLE SCLEROSIS
     Dosage: 30 MCG QW IM
     Route: 030
     Dates: start: 20040928

REACTIONS (15)
  - ASTHENIA [None]
  - CEREBRAL ATROPHY [None]
  - CEREBROVASCULAR ACCIDENT [None]
  - DIFFICULTY IN WALKING [None]
  - DYSGRAPHIA [None]
  - FACIAL PALSY [None]
  - FALL [None]
  - HEMIPARESIS [None]
  - HYDROCEPHALUS [None]
  - INJECTION SITE REACTION [None]
  - MULTIPLE SCLEROSIS [None]
  - RHEUMATOID ARTHRITIS [None]
  - SARCOIDOSIS [None]
  - SJOGREN'S SYNDROME [None]
  - SPEECH DISORDER [None]
